FAERS Safety Report 4587474-0 (Version None)
Quarter: 2005Q1

REPORT INFORMATION
  Report Type: 
  Country: None (occurrence: None)
  Receive Date: 20050215
  Receipt Date: 20050125
  Transmission Date: 20050727
  Serious: Yes (Death, Hospitalization)
  Sender: FDA-Public Use
  Company Number: 2005-00030

PATIENT
  Age: 63 Year
  Sex: Male

DRUGS (2)
  1. VELCADE [Suspect]
     Indication: NON-HODGKIN'S LYMPHOMA
     Dosage: INTRAVENOUS
     Route: 042
     Dates: start: 20041102
  2. RITUXIMAB (RITUXIMAB) [Concomitant]

REACTIONS (9)
  - ANAEMIA [None]
  - DISEASE PROGRESSION [None]
  - DYSPNOEA [None]
  - HYPOTENSION [None]
  - NEUTROPENIA [None]
  - PNEUMONIA [None]
  - PRODUCTIVE COUGH [None]
  - RENAL FAILURE ACUTE [None]
  - RESPIRATORY FAILURE [None]
